FAERS Safety Report 8774387 (Version 2)
Quarter: 2013Q4

REPORT INFORMATION
  Report Type: Spontaneous
  Country: US (occurrence: US)
  Receive Date: 20120907
  Receipt Date: 20131101
  Transmission Date: 20140711
  Serious: No
  Sender: FDA-Public Use
  Company Number: US-009507513-1208USA005871

PATIENT
  Age: 18 Year
  Sex: Female

DRUGS (3)
  1. NEXPLANON [Suspect]
     Indication: CONTRACEPTION
     Dosage: UNK
     Dates: start: 20120702
  2. ALBUTEROL [Concomitant]
  3. LORATADINE [Concomitant]

REACTIONS (5)
  - Inflammation [Recovered/Resolved]
  - Injection site pruritus [Recovered/Resolved]
  - Injection site pain [Recovered/Resolved]
  - Injection site inflammation [Recovered/Resolved]
  - Injection site vesicles [Recovered/Resolved]
